FAERS Safety Report 8065147-X (Version None)
Quarter: 2012Q1

REPORT INFORMATION
  Report Type: 
  Country: None (occurrence: None)
  Receive Date: 20120124
  Receipt Date: 20120110
  Transmission Date: 20120608
  Serious: Yes (Hospitalization)
  Sender: FDA-Public Use
  Company Number: US-RANBAXY-2012US-52113

PATIENT
  Age: 43 Year
  Sex: Male

DRUGS (1)
  1. IBUPROFEN [Suspect]
     Indication: BACK PAIN
     Dosage: 400 MG, TID
     Route: 065

REACTIONS (3)
  - NEPHROTIC SYNDROME [None]
  - HEPATIC FAILURE [None]
  - RENAL FAILURE ACUTE [None]
